FAERS Safety Report 5181146-X (Version None)
Quarter: 2006Q4

REPORT INFORMATION
  Report Type: 
  Country: None (occurrence: None)
  Receive Date: 20061212
  Receipt Date: 20061208
  Transmission Date: 20070319
  Serious: Yes (Death, Life-Threatening, Hospitalization)
  Sender: FDA-Public Use
  Company Number: MTF20060002

PATIENT
  Age: 40 Year
  Sex: Male

DRUGS (1)
  1. METFORMIN HCL [Suspect]
     Indication: DRUG USE FOR UNKNOWN INDICATION
     Dosage: 170 TABS ONCE PO
     Route: 048
     Dates: start: 20050101, end: 20050101

REACTIONS (14)
  - APNOEIC ATTACK [None]
  - BALANCE DISORDER [None]
  - BLOOD GLUCOSE INCREASED [None]
  - CARDIAC ARREST [None]
  - CARDIO-RESPIRATORY ARREST [None]
  - DISORIENTATION [None]
  - HYPERHIDROSIS [None]
  - HYPOTENSION [None]
  - LACTIC ACIDOSIS [None]
  - MENTAL IMPAIRMENT [None]
  - OVERDOSE [None]
  - SOMNOLENCE [None]
  - SUICIDE ATTEMPT [None]
  - URINE OUTPUT DECREASED [None]
